FAERS Safety Report 5374308-X (Version None)
Quarter: 2007Q2

REPORT INFORMATION
  Report Type: 
  Country: None (occurrence: None)
  Receive Date: 20070629
  Receipt Date: 20070619
  Transmission Date: 20071010
  Serious: Yes (Hospitalization, Other)
  Sender: FDA-Public Use
  Company Number: US-JNJFOC-20070501105

PATIENT
  Sex: Male
  Weight: 82.56 kg

DRUGS (11)
  1. REMICADE [Suspect]
     Route: 042
  2. REMICADE [Suspect]
     Indication: RHEUMATOID ARTHRITIS
     Dosage: 4 DOSES ON UNKNOWN DATES
     Route: 042
  3. NEURONTIN [Concomitant]
  4. NORVASC [Concomitant]
  5. PREDNISONE TAB [Concomitant]
  6. CELEBREX [Concomitant]
  7. ULTRAM [Concomitant]
  8. MICARDIS [Concomitant]
  9. PLAQUENIL [Concomitant]
  10. BENADRYL [Concomitant]
     Indication: PREMEDICATION
  11. TYLENOL [Concomitant]
     Indication: PREMEDICATION

REACTIONS (5)
  - ATRIAL FIBRILLATION [None]
  - BRONCHITIS [None]
  - INFECTION [None]
  - INFUSION RELATED REACTION [None]
  - SEPSIS [None]
